FAERS Safety Report 5927158-7 (Version None)
Quarter: 2008Q4

REPORT INFORMATION
  Report Type: 
  Country: None (occurrence: None)
  Receive Date: 20081022
  Receipt Date: 20081010
  Transmission Date: 20090506
  Serious: Yes (Hospitalization, Other)
  Sender: FDA-Public Use
  Company Number: US-PFIZER INC-2008071245

PATIENT
  Sex: Female
  Weight: 76 kg

DRUGS (11)
  1. DILANTIN [Suspect]
     Indication: CONVULSION
     Dates: end: 20060601
  2. DILANTIN [Suspect]
     Dates: end: 20060601
  3. NEXIUM [Concomitant]
  4. TENORMIN [Concomitant]
  5. NORVASC [Concomitant]
  6. DEPAKOTE [Concomitant]
  7. NORCO [Concomitant]
  8. DECADRON [Concomitant]
  9. NYSTATIN [Concomitant]
  10. ZYPREXA [Concomitant]
  11. INSULIN [Concomitant]

REACTIONS (39)
  - AMNESIA [None]
  - BALANCE DISORDER [None]
  - BLOOD POTASSIUM INCREASED [None]
  - BLOOD PRESSURE INCREASED [None]
  - BRAIN MASS [None]
  - CARDIAC HYPERTROPHY [None]
  - CARDIOMEGALY [None]
  - CEREBRAL INFARCTION [None]
  - CEREBROVASCULAR ACCIDENT [None]
  - CHILLS [None]
  - CHOLESTASIS [None]
  - COAGULOPATHY [None]
  - CONVULSION [None]
  - COORDINATION ABNORMAL [None]
  - DEHYDRATION [None]
  - DIARRHOEA [None]
  - DRUG TOXICITY [None]
  - DYSGEUSIA [None]
  - HAEMODYNAMIC INSTABILITY [None]
  - HAEMOGLOBIN DECREASED [None]
  - HEPATIC ENCEPHALOPATHY [None]
  - HEPATIC FAILURE [None]
  - HEPATITIS [None]
  - HYPOKALAEMIA [None]
  - LOSS OF CONSCIOUSNESS [None]
  - LUNG INFILTRATION [None]
  - MEMORY IMPAIRMENT [None]
  - METABOLIC ACIDOSIS [None]
  - MIXED LIVER INJURY [None]
  - ORAL CANDIDIASIS [None]
  - PYREXIA [None]
  - RASH [None]
  - RASH MACULO-PAPULAR [None]
  - RENAL FAILURE ACUTE [None]
  - SKIN DISCOLOURATION [None]
  - SKIN EXFOLIATION [None]
  - SOMNOLENCE [None]
  - STATUS EPILEPTICUS [None]
  - WEIGHT DECREASED [None]
